FAERS Safety Report 10586057 (Version 4)
Quarter: 2014Q4

REPORT INFORMATION
  Report Type: Spontaneous
  Country: IT (occurrence: IT)
  Receive Date: 20141115
  Receipt Date: 20141205
  Transmission Date: 20150529
  Serious: Yes (Other)
  Sender: FDA-Public Use
  Company Number: IT-ASTRAZENECA-2014SE86149

PATIENT
  Age: 75 Year
  Sex: Male
  Weight: 93 kg

DRUGS (15)
  1. SOTALEX [Concomitant]
     Active Substance: SOTALOL
     Indication: ARRHYTHMIA
     Route: 048
     Dates: start: 20090101
  2. NEXIUM [Suspect]
     Active Substance: ESOMEPRAZOLE MAGNESIUM
     Indication: BARRETT^S OESOPHAGUS
     Route: 048
  3. NEXIUM [Suspect]
     Active Substance: ESOMEPRAZOLE MAGNESIUM
     Indication: BARRETT^S OESOPHAGUS
     Route: 048
     Dates: start: 20140701, end: 20140707
  4. LOSARTAN [Concomitant]
     Active Substance: LOSARTAN
     Indication: HYPERTENSION
     Route: 048
     Dates: start: 20090101, end: 20141111
  5. NORMIX [Concomitant]
     Active Substance: RIFAXIMIN
     Route: 048
     Dates: start: 20100101, end: 20141111
  6. DIBASE [Concomitant]
     Active Substance: CHOLECALCIFEROL
     Dosage: 20 GTT, 10.000UI/ML/WEEK
     Route: 048
     Dates: start: 20100101, end: 20141111
  7. OTHER DRUGS [Concomitant]
     Active Substance: UNSPECIFIED INGREDIENT
  8. NEXIUM [Suspect]
     Active Substance: ESOMEPRAZOLE MAGNESIUM
     Indication: BARRETT^S OESOPHAGUS
     Route: 048
     Dates: start: 2008, end: 2014
  9. NORMIX [Concomitant]
     Active Substance: RIFAXIMIN
     Route: 048
     Dates: start: 20100101, end: 20141111
  10. PROVISACOR [Concomitant]
     Active Substance: ROSUVASTATIN
     Indication: HYPERTENSION
     Route: 048
     Dates: start: 20090101, end: 20141111
  11. NEXIUM [Suspect]
     Active Substance: ESOMEPRAZOLE MAGNESIUM
     Indication: BARRETT^S OESOPHAGUS
     Route: 048
     Dates: start: 20070101, end: 20140707
  12. NORMIX [Concomitant]
     Active Substance: RIFAXIMIN
     Dosage: ONE WEEK PER MONTH
     Route: 048
  13. CARDIOASPIRIN (ASA) [Concomitant]
     Route: 048
     Dates: start: 20020101, end: 20141111
  14. PROVISACOR [Concomitant]
     Active Substance: ROSUVASTATIN
     Indication: HYPERTENSION
     Route: 048
     Dates: start: 20090101, end: 20141111
  15. PROVISACOR [Concomitant]
     Active Substance: ROSUVASTATIN
     Indication: HYPERTENSION

REACTIONS (2)
  - Intentional product misuse [Unknown]
  - Spinal fracture [Recovered/Resolved with Sequelae]

NARRATIVE: CASE EVENT DATE: 2010
